FAERS Safety Report 9434311 (Version 4)
Quarter: 2014Q1

REPORT INFORMATION
  Report Type: Spontaneous
  Country: AT (occurrence: AT)
  Receive Date: 20130801
  Receipt Date: 20140219
  Transmission Date: 20141002
  Serious: Yes (Disabling)
  Sender: FDA-Public Use
  Company Number: AT-CELGENEUS-009-21880-13071930

PATIENT
  Age: 69 Year
  Sex: Female
  Weight: 75 kg

DRUGS (18)
  1. REVLIMID [Suspect]
     Indication: PLASMA CELL MYELOMA
     Dosage: 10 MILLIGRAM
     Route: 048
     Dates: start: 20130207, end: 20130712
  2. MLN9708/PLACEBO [Suspect]
     Indication: PLASMA CELL MYELOMA
     Route: 048
     Dates: start: 20130207, end: 20130712
  3. MLN9708/PLACEBO [Suspect]
     Route: 048
     Dates: start: 20130820
  4. DEXAMETHASONE [Suspect]
     Indication: PLASMA CELL MYELOMA
     Dosage: 40 MILLIGRAM
     Route: 048
     Dates: start: 20130207, end: 20130712
  5. DEXAMETHASONE [Suspect]
     Dosage: 40 MILLIGRAM
     Route: 048
     Dates: start: 20130820
  6. DEXAMETHASONE [Suspect]
     Route: 065
     Dates: start: 200605, end: 201105
  7. DEXAMETHASONE [Suspect]
     Route: 065
     Dates: start: 201107
  8. FLUCTINE [Concomitant]
     Indication: DEPRESSION
     Dosage: 20 MILLIGRAM
     Route: 065
     Dates: start: 2006
  9. NEXIUM [Concomitant]
     Indication: ABDOMINAL PAIN UPPER
     Dosage: 40 MILLIGRAM
     Route: 065
     Dates: start: 20110715
  10. THYREX [Concomitant]
     Indication: THYROIDECTOMY
     Dosage: 75 MICROGRAM
     Route: 065
     Dates: start: 20130209
  11. NORVASK [Concomitant]
     Indication: HYPERTENSION
     Dosage: 5 MILLIGRAM
     Route: 065
     Dates: start: 2011
  12. ROCALTROL [Concomitant]
     Indication: HYPOCALCAEMIA
     Dosage: 1 MICROGRAM
     Route: 065
     Dates: start: 20100423
  13. MAXI-KALZ [Concomitant]
     Indication: HYPOCALCAEMIA
     Dosage: 1000 MILLIGRAM
     Route: 065
     Dates: start: 2010
  14. TRITTICO [Concomitant]
     Indication: INSOMNIA
     Route: 065
     Dates: start: 201301
  15. SERETIDE [Concomitant]
     Indication: CHRONIC OBSTRUCTIVE PULMONARY DISEASE
     Route: 065
     Dates: start: 2006
  16. VALACICLOVIR [Concomitant]
     Indication: INFECTION PROPHYLAXIS
     Dosage: 500 MILLIGRAM
     Route: 065
     Dates: start: 20130207
  17. ZOFRAN [Concomitant]
     Indication: PROPHYLAXIS OF NAUSEA AND VOMITING
     Route: 065
     Dates: start: 20130207
  18. THROMBO ASS [Concomitant]
     Indication: THROMBOSIS PROPHYLAXIS
     Dosage: 100 MILLIGRAM
     Route: 065
     Dates: start: 20130207

REACTIONS (1)
  - Retinal vein thrombosis [Recovering/Resolving]
